FAERS Safety Report 22239627 (Version 2)
Quarter: 2023Q2

REPORT INFORMATION
  Report Type: Spontaneous
  Country: IN (occurrence: IN)
  Receive Date: 20230421
  Receipt Date: 20230425
  Transmission Date: 20230722
  Serious: Yes (Death, Hospitalization, Other)
  Sender: FDA-Public Use
  Company Number: IN-BRISTOL-MYERS SQUIBB COMPANY-2023-055459

PATIENT
  Age: 9 Decade
  Sex: Male

DRUGS (1)
  1. YERVOY [Suspect]
     Active Substance: IPILIMUMAB
     Indication: Non-small cell lung cancer
     Dosage: 5 MG/ML INTRAVENOUS SOLUTION FOR INFUSION (IN10ML VIAL CONTAINING 50MG OF IPILIMUMAB
     Route: 042

REACTIONS (2)
  - Death [Fatal]
  - Off label use [Unknown]
